FAERS Safety Report 5797056-0 (Version None)
Quarter: 2008Q3

REPORT INFORMATION
  Report Type: 
  Country: None (occurrence: None)
  Receive Date: 20080701
  Receipt Date: 20080625
  Transmission Date: 20090109
  Serious: Yes (Disabling)
  Sender: FDA-Public Use
  Company Number: JP-ASTRAZENECA-2008AP04832

PATIENT
  Age: 74 Year
  Sex: Female

DRUGS (5)
  1. DIPRIVAN [Suspect]
     Indication: INDUCTION OF ANAESTHESIA
     Dosage: DOSE UNKNOWN
     Route: 042
  2. REMIFENTANIL HYDROCHLORIDE [Concomitant]
     Indication: INDUCTION AND MAINTENANCE OF ANAESTHESIA
     Dosage: DOSE UNKNOWN
     Route: 042
  3. FENTANYL [Concomitant]
     Indication: INDUCTION OF ANAESTHESIA
     Dosage: DOSE UNKNOWN
     Route: 042
  4. VECURONIUM BROMIDE [Concomitant]
     Indication: INDUCTION AND MAINTENANCE OF ANAESTHESIA
     Dosage: DOSE UNKNOWN
     Route: 042
  5. SEVOFLURANE [Concomitant]
     Indication: MAINTENANCE OF ANAESTHESIA
     Dosage: DOSE UNKNOWN
     Route: 055

REACTIONS (2)
  - ATRIOVENTRICULAR BLOCK COMPLETE [None]
  - CARDIAC ARREST [None]
